FAERS Safety Report 7824741-9 (Version None)
Quarter: 2011Q4

REPORT INFORMATION
  Report Type: 
  Country: None (occurrence: None)
  Receive Date: 20111019
  Receipt Date: 20111010
  Transmission Date: 20120403
  Serious: Yes (Hospitalization, Other)
  Sender: FDA-Public Use
  Company Number: PHEH2011US06592

PATIENT
  Sex: Male

DRUGS (2)
  1. DIOVAN [Suspect]
     Dosage: 1 DF, QD (80 MG)
  2. KEPPRA [Concomitant]
     Dosage: 2 DF, QD

REACTIONS (6)
  - VISUAL FIELD DEFECT [None]
  - BRAIN NEOPLASM [None]
  - VISUAL ACUITY REDUCED [None]
  - GLIOBLASTOMA [None]
  - HYPERTENSION [None]
  - CYST [None]
